FAERS Safety Report 24686120 (Version 1)
Quarter: 2024Q4

REPORT INFORMATION
  Report Type: Spontaneous
  Country: US (occurrence: None)
  Receive Date: 20241129
  Receipt Date: 20241129
  Transmission Date: 20250115
  Serious: Yes (Hospitalization)
  Sender: Public
  Company Number: None

PATIENT
  Sex: Male

DRUGS (1)
  1. TEMOZOLOMIDE [Suspect]
     Active Substance: TEMOZOLOMIDE
     Indication: Meningioma malignant
     Dosage: FREQUENCY : DAILY;?
     Route: 048
     Dates: start: 202409

REACTIONS (3)
  - Septic shock [None]
  - Large intestine perforation [None]
  - Therapy interrupted [None]
